FAERS Safety Report 20326067 (Version 1)
Quarter: 2022Q1

REPORT INFORMATION
  Report Type: Spontaneous
  Country: GB (occurrence: GB)
  Receive Date: 20220112
  Receipt Date: 20220112
  Transmission Date: 20220423
  Serious: Yes (Hospitalization, Disabling, Congenital Anomaly, Other)
  Sender: FDA-Public Use
  Company Number: GB-MHRA-ADR 20479354

PATIENT
  Age: 1 Year
  Sex: Male
  Weight: 12.15 kg

DRUGS (1)
  1. CITALOPRAM HYDROBROMIDE [Suspect]
     Active Substance: CITALOPRAM HYDROBROMIDE
     Indication: Depression
     Dosage: UNK UNK,ONCE A DAY,,20 MG ONCE IN A DAY
     Route: 064

REACTIONS (5)
  - Cerebral infarction [Unknown]
  - Cerebral palsy [Unknown]
  - Hemiplegia [Unknown]
  - Neonatal seizure [Recovered/Resolved]
  - Tonic convulsion [Recovered/Resolved]
